FAERS Safety Report 9337747 (Version 1)
Quarter: 2013Q2

REPORT INFORMATION
  Report Type: Spontaneous
  Country: GB (occurrence: GB)
  Receive Date: 20130607
  Receipt Date: 20130607
  Transmission Date: 20140414
  Serious: Yes (Hospitalization)
  Sender: FDA-Public Use
  Company Number: GB-MYLANLABS-2013S1011547

PATIENT
  Age: 87 Year
  Sex: Male

DRUGS (5)
  1. PHENYTOIN [Suspect]
     Indication: EPILEPSY
     Route: 065
  2. RIFAMPICIN [Concomitant]
     Route: 065
  3. ISONIAZID [Concomitant]
     Route: 065
  4. ETHAMBUTOL [Concomitant]
     Route: 065
  5. PYRAZINAMIDE [Concomitant]
     Route: 065

REACTIONS (13)
  - Toxicity to various agents [Recovered/Resolved]
  - Confusional state [Recovered/Resolved]
  - Dysarthria [Recovered/Resolved]
  - Diplopia [Recovered/Resolved]
  - Nystagmus [Recovered/Resolved]
  - Dysphagia [Recovered/Resolved]
  - Dizziness [Recovered/Resolved]
  - Nausea [Recovered/Resolved]
  - Vomiting [Recovered/Resolved]
  - Past-pointing [Recovered/Resolved]
  - Ataxia [Recovered/Resolved]
  - Intention tremor [Recovered/Resolved]
  - Decreased appetite [Recovering/Resolving]
